FAERS Safety Report 25890103 (Version 1)
Quarter: 2025Q4

REPORT INFORMATION
  Report Type: Spontaneous
  Country: US (occurrence: US)
  Receive Date: 20251007
  Receipt Date: 20251007
  Transmission Date: 20260118
  Serious: Yes (Life-Threatening, Other)
  Sender: RANBAXY
  Company Number: US-SUN PHARMACEUTICAL INDUSTRIES INC-2025R1-530145

PATIENT
  Age: 36 Year
  Sex: Male

DRUGS (1)
  1. DOXORUBICIN [Suspect]
     Active Substance: DOXORUBICIN
     Indication: Angiosarcoma
     Dosage: 60 MG/M2
     Route: 065

REACTIONS (3)
  - Pericardial effusion [Unknown]
  - Cardiac tamponade [Unknown]
  - Metastases to central nervous system [Unknown]
